FAERS Safety Report 5225609-7 (Version None)
Quarter: 2007Q1

REPORT INFORMATION
  Report Type: 
  Country: None (occurrence: None)
  Receive Date: 20061201
  Receipt Date: 20061030
  Transmission Date: 20070707
  Serious: Yes (Other)
  Sender: FDA-Public Use
  Company Number: US200608005837

PATIENT
  Age: 48 Year
  Sex: Male
  Weight: 70.7 kg

DRUGS (8)
  1. CYMBALTA [Suspect]
     Indication: DEPRESSION
     Dosage: 60 MG, DAILY (1/D)
     Dates: start: 20060716
  2. SYNTHROID [Concomitant]
  3. VIRAMUNE [Concomitant]
  4. KALETRA [Concomitant]
  5. VIDEX /USA/(DIDANOSINE) [Concomitant]
  6. COZAAR [Concomitant]
  7. ESZOPICLONE (ESZOPICLONE) [Concomitant]
  8. LIPITOR [Concomitant]

REACTIONS (1)
  - HYPERTRIGLYCERIDAEMIA [None]
